FAERS Safety Report 19229004 (Version 1)
Quarter: 2021Q2

REPORT INFORMATION
  Report Type: Spontaneous
  Country: GB (occurrence: GB)
  Receive Date: 20210506
  Receipt Date: 20210506
  Transmission Date: 20210717
  Serious: Yes (Other)
  Sender: FDA-Public Use
  Company Number: GB-PFIZER INC-2021068851

PATIENT
  Sex: Female

DRUGS (1)
  1. MOROCTOCOG ALFA [Suspect]
     Active Substance: ANTIHEMOPHILIC FACTOR, HUMAN RECOMBINANT RESIDUES 743-1636 DELETED
     Indication: HAEMOPHILIA
     Dosage: BAXJECT III,INFUSION SET,MYPKFIT
     Route: 065

REACTIONS (3)
  - Spontaneous haemorrhage [Unknown]
  - Pain [Unknown]
  - Menstrual disorder [Unknown]
